FAERS Safety Report 18700561 (Version 2)
Quarter: 2021Q1

REPORT INFORMATION
  Report Type: Spontaneous
  Country: US (occurrence: US)
  Receive Date: 20210105
  Receipt Date: 20210107
  Transmission Date: 20210419
  Serious: Yes (Hospitalization, Other)
  Sender: FDA-Public Use
  Company Number: US-PFIZER INC-2020514931

PATIENT
  Age: 34 Year
  Sex: Male

DRUGS (2)
  1. TESTOSTERONE CIPIONATE [Suspect]
     Active Substance: TESTOSTERONE
     Dosage: UNK, WEEKLY (INJECTIONS FOR THE PAST 5 YEARS)
  2. EXPEL OD [Concomitant]
     Indication: PERIPHERAL SWELLING
     Dosage: UNK (2 MONTHS AGO)

REACTIONS (1)
  - Renal failure [Unknown]
